FAERS Safety Report 4737518-8 (Version None)
Quarter: 2005Q3

REPORT INFORMATION
  Report Type: 
  Country: None (occurrence: None)
  Receive Date: 20050809
  Receipt Date: 20050727
  Transmission Date: 20060218
  Serious: No
  Sender: FDA-Public Use
  Company Number: US-GLAXOSMITHKLINE-A0567849A

PATIENT
  Age: 72 Year
  Sex: Female

DRUGS (12)
  1. COMMIT [Suspect]
  2. SYNTHROID [Concomitant]
  3. ALLEGRA [Concomitant]
  4. ALTACE [Concomitant]
  5. TOPROL-XL [Concomitant]
  6. PLAVIX [Concomitant]
  7. GLUCOVANCE [Concomitant]
  8. MIACALCIN [Concomitant]
  9. PROTONIX [Concomitant]
  10. NORVASC [Concomitant]
  11. ASPIRIN [Concomitant]
  12. VYTORIN [Concomitant]

REACTIONS (1)
  - HICCUPS [None]
